FAERS Safety Report 14604690 (Version 2)
Quarter: 2018Q2

REPORT INFORMATION
  Report Type: Report from Study
  Country: JP (occurrence: JP)
  Receive Date: 20180306
  Receipt Date: 20180504
  Transmission Date: 20180711
  Serious: Yes (Hospitalization)
  Sender: FDA-Public Use
  Company Number: JP-ACTELION-A-CH2016-140239

PATIENT
  Sex: Female

DRUGS (25)
  1. ETHAMBUTOL HYDROCHLORIDE. [Suspect]
     Active Substance: ETHAMBUTOL HYDROCHLORIDE
     Indication: TUBERCULOSIS
     Dosage: 750 MG, QD
     Route: 048
     Dates: start: 20150213, end: 20150407
  2. PYRIDOXAL PHOSPHATE [Suspect]
     Active Substance: PYRIDOXAL PHOSPHATE
     Indication: TUBERCULOSIS
     Dosage: 1 TBS, UNK
     Route: 048
     Dates: start: 20150213, end: 20160130
  3. ISCOTIN [Suspect]
     Active Substance: ISONIAZID
     Indication: TUBERCULOSIS
     Dosage: 200 G, UNK
     Route: 048
     Dates: start: 20160609
  4. VOLIBRIS [Concomitant]
     Active Substance: AMBRISENTAN
  5. PREDNISOLONE. [Concomitant]
     Active Substance: PREDNISOLONE
  6. EPOPROSTENOL ACT [Suspect]
     Active Substance: EPOPROSTENOL
     Indication: PULMONARY ARTERIAL HYPERTENSION
     Dosage: UNK
     Route: 042
     Dates: start: 20150115, end: 20171109
  7. RIFAMPICIN [Suspect]
     Active Substance: RIFAMPIN
     Indication: TUBERCULOSIS
     Dosage: 450 MG, QD
     Route: 048
     Dates: start: 20150213, end: 20150407
  8. SAMSCA [Concomitant]
     Active Substance: TOLVAPTAN
  9. ADCIRCA [Concomitant]
     Active Substance: TADALAFIL
  10. OXYGEN. [Concomitant]
     Active Substance: OXYGEN
  11. BROTIZOLAM [Concomitant]
     Active Substance: BROTIZOLAM
  12. FUROSEMIDE. [Concomitant]
     Active Substance: FUROSEMIDE
  13. SLOW-K [Concomitant]
     Active Substance: POTASSIUM CHLORIDE
  14. MIYA-BM [Concomitant]
     Active Substance: CLOSTRIDIUM BUTYRICUM SPORES STRAIN M-55
  15. LENDORMIN [Concomitant]
     Active Substance: BROTIZOLAM
  16. LASIX [Concomitant]
     Active Substance: FUROSEMIDE
  17. ADALAT [Concomitant]
     Active Substance: NIFEDIPINE
  18. URSO [Concomitant]
     Active Substance: URSODIOL
  19. SPIRONOLACTONE. [Concomitant]
     Active Substance: SPIRONOLACTONE
  20. ISCOTIN [Suspect]
     Active Substance: ISONIAZID
     Dosage: 200 G, UNK
     Route: 048
     Dates: start: 20150213, end: 20160130
  21. ALDACTONE A [Concomitant]
     Active Substance: SPIRONOLACTONE
  22. FOSAMAC [Concomitant]
     Active Substance: ALENDRONATE SODIUM
  23. OLOPATADINE HYDROCHLORIDE. [Concomitant]
     Active Substance: OLOPATADINE HYDROCHLORIDE
  24. PYRIDOXAL PHOSPHATE [Suspect]
     Active Substance: PYRIDOXAL PHOSPHATE
     Indication: NEUROPATHY PERIPHERAL
     Dosage: 30 MG, UNK
     Route: 048
     Dates: start: 20160609
  25. NEXIUM [Concomitant]
     Active Substance: ESOMEPRAZOLE MAGNESIUM

REACTIONS (5)
  - Palpitations [Recovering/Resolving]
  - Rash generalised [Recovered/Resolved]
  - Basedow^s disease [Recovering/Resolving]
  - Pericarditis [Recovered/Resolved]
  - Drug eruption [Recovering/Resolving]

NARRATIVE: CASE EVENT DATE: 20150329
